FAERS Safety Report 24833003 (Version 1)
Quarter: 2025Q1

REPORT INFORMATION
  Report Type: Spontaneous
  Country: FR (occurrence: FR)
  Receive Date: 20250111
  Receipt Date: 20250111
  Transmission Date: 20250409
  Serious: Yes (Death, Other)
  Sender: AMGEN
  Company Number: FR-AMGEN-FRASP2025000572

PATIENT

DRUGS (1)
  1. ADALIMUMAB [Suspect]
     Active Substance: ADALIMUMAB
     Indication: Exposure during pregnancy
     Route: 064

REACTIONS (28)
  - Stillbirth [Fatal]
  - Multiple congenital abnormalities [Unknown]
  - Encephalocele [Unknown]
  - Hydrocephalus [Unknown]
  - Microcephaly [Unknown]
  - Transposition of the great vessels [Unknown]
  - Ventricular septal defect [Unknown]
  - Atrial septal defect [Unknown]
  - Pulmonary valve stenosis [Unknown]
  - Anomalous pulmonary venous connection [Unknown]
  - Cleft lip [Unknown]
  - Cleft palate [Unknown]
  - Congenital absence of bile ducts [Unknown]
  - Diaphragmatic hernia [Unknown]
  - Congenital hydronephrosis [Unknown]
  - Ectopic kidney [Unknown]
  - Hypospadias [Unknown]
  - Talipes [Unknown]
  - Joint dislocation [Unknown]
  - Polydactyly [Unknown]
  - Heterotaxia [Unknown]
  - Congenital anomaly [Unknown]
  - Spina bifida [Unknown]
  - Hepatoblastoma [Unknown]
  - Infection [Unknown]
  - Low birth weight baby [Unknown]
  - Small for dates baby [Unknown]
  - Large for dates baby [Unknown]
